FAERS Safety Report 9900136 (Version 1)
Quarter: 2014Q1

REPORT INFORMATION
  Report Type: Other
  Country: US (occurrence: US)
  Receive Date: 20140214
  Receipt Date: 20140214
  Transmission Date: 20141002
  Serious: Yes (Hospitalization)
  Sender: FDA-Public Use
  Company Number: US-RB-063548-14

PATIENT
  Sex: 0

DRUGS (1)
  1. BUPRENORPHINE UNSPECIFIED [Suspect]
     Indication: DRUG DEPENDENCE
     Dosage: ADMINISTERED AT A DOSE OF 16-32 MG, THREE TIMES A WEEK
     Route: 065

REACTIONS (1)
  - Hospitalisation [Unknown]
